APPROVED DRUG PRODUCT: DESOGESTREL AND ETHINYL ESTRADIOL
Active Ingredient: DESOGESTREL; ETHINYL ESTRADIOL
Strength: 0.15MG;0.03MG
Dosage Form/Route: TABLET;ORAL-28
Application: A202085 | Product #001
Applicant: XIROMED LLC
Approved: May 20, 2015 | RLD: No | RS: No | Type: DISCN